FAERS Safety Report 7099124-2 (Version None)
Quarter: 2010Q4

REPORT INFORMATION
  Report Type: 
  Country: None (occurrence: None)
  Receive Date: 20101112
  Receipt Date: 20101104
  Transmission Date: 20110411
  Serious: Yes (Hospitalization)
  Sender: FDA-Public Use
  Company Number: B0679484A

PATIENT
  Sex: Male

DRUGS (6)
  1. VALTREX [Suspect]
     Indication: HERPES ZOSTER
     Dosage: 1000MG PER DAY
     Route: 048
     Dates: start: 20100917, end: 20100919
  2. ALFAROL [Concomitant]
     Route: 048
  3. AMOBAN [Concomitant]
     Route: 048
  4. BERIZYM [Concomitant]
     Route: 048
  5. FOSRENOL [Concomitant]
  6. BIO THREE [Concomitant]

REACTIONS (3)
  - AGITATION [None]
  - DELIRIUM [None]
  - DIZZINESS [None]
